FAERS Safety Report 14347226 (Version 1)
Quarter: 2018Q1

REPORT INFORMATION
  Report Type: Spontaneous
  Country: US (occurrence: US)
  Receive Date: 20180102
  Receipt Date: 20180102
  Transmission Date: 20180509
  Serious: Yes (Other)
  Sender: FDA-Public Use
  Company Number: None

PATIENT
  Age: 59 Year
  Sex: Male
  Weight: 75.2 kg

DRUGS (1)
  1. DEXMEDETOMIDINE. [Suspect]
     Active Substance: DEXMEDETOMIDINE
     Indication: LIGHT ANAESTHESIA
     Dosage: 0-1.4 MCG/KG/HR; INTRAVENOUS DRIP?
     Route: 041
     Dates: start: 20171218, end: 20171219

REACTIONS (1)
  - Hyperthermia [None]

NARRATIVE: CASE EVENT DATE: 20171219
